FAERS Safety Report 6288545-3 (Version None)
Quarter: 2009Q3

REPORT INFORMATION
  Report Type: 
  Country: None (occurrence: None)
  Receive Date: 20090729
  Receipt Date: 20090720
  Transmission Date: 20100115
  Serious: Yes (Hospitalization, Other)
  Sender: FDA-Public Use
  Company Number: US-JNJFOC-20090506308

PATIENT
  Sex: Female
  Weight: 127.01 kg

DRUGS (1)
  1. REMICADE [Suspect]
     Indication: RHEUMATOID ARTHRITIS
     Dosage: LONG STANDING
     Route: 042

REACTIONS (2)
  - PLEURISY [None]
  - SARCOIDOSIS [None]
